FAERS Safety Report 25007218 (Version 2)
Quarter: 2025Q1

REPORT INFORMATION
  Report Type: Spontaneous
  Country: JP (occurrence: JP)
  Receive Date: 20250225
  Receipt Date: 20250325
  Transmission Date: 20250408
  Serious: Yes (Death, Hospitalization, Other)
  Sender: UCB
  Company Number: JP-UCBJ-CD202502319UCBPHAPROD

PATIENT
  Age: 12 Year
  Sex: Male

DRUGS (1)
  1. FINTEPLA [Suspect]
     Active Substance: FENFLURAMINE
     Indication: Lennox-Gastaut syndrome
     Route: 048
     Dates: start: 20250129, end: 20250216

REACTIONS (2)
  - Multiple organ dysfunction syndrome [Fatal]
  - General physical health deterioration [Fatal]

NARRATIVE: CASE EVENT DATE: 20250216
